FAERS Safety Report 6913184-8 (Version None)
Quarter: 2010Q3

REPORT INFORMATION
  Report Type: 
  Country: None (occurrence: None)
  Receive Date: 20100806
  Receipt Date: 20091210
  Transmission Date: 20110219
  Serious: Yes (Other)
  Sender: FDA-Public Use
  Company Number: US-PFIZER INC-2009171873

PATIENT
  Sex: Female
  Weight: 37.4 kg

DRUGS (9)
  1. DILANTIN [Suspect]
     Indication: CONVULSION
     Dosage: 1 G, UNK
     Route: 042
     Dates: start: 20060518, end: 20060622
  2. DILANTIN [Suspect]
     Indication: INTRACRANIAL ANEURYSM
  3. DILANTIN [Suspect]
     Dosage: 300 MG, 1X/DAY (AT BED TIME)
     Route: 048
     Dates: start: 20060616, end: 20060625
  4. DILANTIN [Suspect]
  5. DILANTIN [Suspect]
     Dosage: 100 MG, UNK
     Route: 048
     Dates: start: 20060529
  6. DILANTIN [Suspect]
  7. METRONIDAZOLE [Concomitant]
     Dosage: 500 MG, 2X/DAY
     Route: 048
     Dates: start: 20060617, end: 20060620
  8. SEPTRA DS [Concomitant]
     Dosage: 160/800 MG, 2X/DAY
     Route: 048
     Dates: start: 20060617, end: 20060620
  9. NITROFURANTOIN [Concomitant]
     Dosage: UNK
     Dates: start: 20090618

REACTIONS (1)
  - STEVENS-JOHNSON SYNDROME [None]
